FAERS Safety Report 24805354 (Version 1)
Quarter: 2025Q1

REPORT INFORMATION
  Report Type: Spontaneous
  Country: RU (occurrence: RU)
  Receive Date: 20250103
  Receipt Date: 20250103
  Transmission Date: 20250408
  Serious: Yes (Hospitalization)
  Sender: Harrow Health
  Company Number: RU-IMP-2024001178

PATIENT
  Age: 61 Year
  Sex: Female
  Weight: 70 kg

DRUGS (4)
  1. VIGAMOX [Suspect]
     Active Substance: MOXIFLOXACIN HYDROCHLORIDE
     Indication: Antibiotic therapy
     Route: 047
     Dates: start: 20241218, end: 20241219
  2. BENOXINATE HYDROCHLORIDE [Suspect]
     Active Substance: BENOXINATE HYDROCHLORIDE
     Indication: Local anaesthesia
     Route: 047
     Dates: start: 20241218, end: 20241218
  3. INDOMETHACIN [Suspect]
     Active Substance: INDOMETHACIN
     Indication: Eye inflammation
     Route: 047
     Dates: start: 20241218, end: 20241219
  4. BETADINE [Suspect]
     Active Substance: POVIDONE-IODINE
     Indication: Preoperative care
     Route: 061
     Dates: start: 20241218, end: 20241218

REACTIONS (1)
  - Urticaria [Unknown]

NARRATIVE: CASE EVENT DATE: 20241218
